FAERS Safety Report 8831978 (Version 1)
Quarter: 2012Q4

REPORT INFORMATION
  Report Type: 
  Country: JP (occurrence: JP)
  Receive Date: 20121009
  Receipt Date: 20121009
  Transmission Date: 20130627
  Serious: Yes (Life-Threatening, Disabling, Other)
  Sender: FDA-Public Use
  Company Number: JP-ROCHE-795752

PATIENT
  Age: 65 None
  Sex: Male
  Weight: 63 kg

DRUGS (4)
  1. AVASTIN [Suspect]
     Indication: LUNG ADENOCARCINOMA METASTATIC
     Route: 042
     Dates: start: 20100823, end: 20101209
  2. AVASTIN [Suspect]
     Route: 042
     Dates: start: 201012, end: 20110721
  3. PACLITAXEL [Concomitant]
     Indication: LUNG ADENOCARCINOMA METASTATIC
     Route: 041
     Dates: start: 20100823, end: 20101209
  4. CARBOPLATIN [Concomitant]

REACTIONS (5)
  - Subarachnoid haemorrhage [Recovered/Resolved with Sequelae]
  - Cerebral infarction [Recovered/Resolved]
  - Intracranial aneurysm [Unknown]
  - Hypertension [Recovered/Resolved]
  - Acute sinusitis [Unknown]
